FAERS Safety Report 25078284 (Version 1)
Quarter: 2025Q1

REPORT INFORMATION
  Report Type: Spontaneous
  Country: US (occurrence: US)
  Receive Date: 20250314
  Receipt Date: 20250314
  Transmission Date: 20250409
  Serious: Yes (Hospitalization)
  Sender: ROCHE
  Company Number: US-ROCHE-10000223068

PATIENT
  Sex: Female

DRUGS (3)
  1. ACTEMRA [Suspect]
     Active Substance: TOCILIZUMAB
     Indication: Systemic sclerosis pulmonary
     Dosage: STRENGTH: 162MG/0.9M
     Route: 058
     Dates: start: 202407
  2. ACTEMRA [Suspect]
     Active Substance: TOCILIZUMAB
  3. OFEV [Concomitant]
     Active Substance: NINTEDANIB

REACTIONS (1)
  - Arthritis infective [Unknown]
